FAERS Safety Report 7348889-0 (Version None)
Quarter: 2011Q1

REPORT INFORMATION
  Report Type: 
  Country: None (occurrence: None)
  Receive Date: 20110314
  Receipt Date: 20110304
  Transmission Date: 20110831
  Serious: Yes (Hospitalization, Other)
  Sender: FDA-Public Use
  Company Number: ES-ELI_LILLY_AND_COMPANY-ES201102006120

PATIENT
  Sex: Female
  Weight: 76 kg

DRUGS (8)
  1. RASILEZ [Concomitant]
     Indication: BLOOD PRESSURE INCREASED
     Dosage: 150 MG, 2/D
     Route: 048
     Dates: end: 20110201
  2. NIDOL [Concomitant]
     Indication: PAIN
     Dosage: 400/30, AS NEEDED
     Route: 048
     Dates: end: 20110201
  3. SINVASTATINA [Concomitant]
     Indication: HYPERCHOLESTEROLAEMIA
     Dosage: 10 MG, DAILY (1/D) 1 AT NIGHT
     Route: 048
  4. FUROSEMIDA                         /00032601/ [Concomitant]
     Indication: DIURETIC THERAPY
     Dosage: 40 MG, DAILY (1/D)
     Route: 048
     Dates: end: 20110201
  5. DOXAZOSINA [Concomitant]
     Indication: HYPERTENSION
     Dosage: 4 MG, 2/D
     Route: 048
     Dates: end: 20110201
  6. FLECAINIDE ACETATE [Concomitant]
     Indication: TACHYCARDIA
     Dosage: 100 MG, DAILY (1/D)
     Route: 048
     Dates: end: 20110201
  7. FORTEO [Suspect]
     Indication: OSTEOPOROSIS
     Dosage: 20 UG, DAILY (1/D)
     Route: 058
     Dates: start: 20101227, end: 20110228
  8. LEVOTHROID [Concomitant]
     Indication: HYPOTHYROIDISM
     Dosage: 100 MG, DAILY (1/D)
     Route: 048

REACTIONS (6)
  - PULMONARY OEDEMA [None]
  - DYSPNOEA [None]
  - FATIGUE [None]
  - MUSCULAR WEAKNESS [None]
  - CARDIAC FAILURE [None]
  - TREMOR [None]
